FAERS Safety Report 5688044-3 (Version None)
Quarter: 2008Q1

REPORT INFORMATION
  Report Type: 
  Country: None (occurrence: None)
  Receive Date: 20080327
  Receipt Date: 20080311
  Transmission Date: 20080703
  Serious: Yes (Other)
  Sender: FDA-Public Use
  Company Number: 2008US000750

PATIENT
  Sex: Female

DRUGS (1)
  1. VESICARE [Suspect]
     Indication: DRUG USE FOR UNKNOWN INDICATION
     Dosage: 5 MG,

REACTIONS (4)
  - CONFUSIONAL STATE [None]
  - HEADACHE [None]
  - PSYCHOTIC DISORDER [None]
  - VISION BLURRED [None]
